FAERS Safety Report 4732396-5 (Version None)
Quarter: 2005Q3

REPORT INFORMATION
  Report Type: 
  Country: None (occurrence: None)
  Receive Date: 20050801
  Receipt Date: 20050714
  Transmission Date: 20060218
  Serious: Yes (Hospitalization)
  Sender: FDA-Public Use
  Company Number: 2005BI005110

PATIENT
  Age: 47 Year
  Sex: Female
  Weight: 52.1637 kg

DRUGS (2)
  1. AVONEX [Suspect]
     Indication: MULTIPLE SCLEROSIS
     Dosage: 30 UG;QW; IM
     Route: 030
     Dates: start: 19990201
  2. NATALIZUMAB [Suspect]
     Indication: MULTIPLE SCLEROSIS
     Dosage: 300 MG;QM; IV
     Route: 030
     Dates: start: 20050223, end: 20050223

REACTIONS (8)
  - CYSTITIS [None]
  - DIARRHOEA [None]
  - FUNGAL INFECTION [None]
  - HERPES VIRUS INFECTION [None]
  - SKIN DISCOLOURATION [None]
  - URINARY TRACT INFECTION [None]
  - VISUAL DISTURBANCE [None]
  - VOMITING [None]
